FAERS Safety Report 25080276 (Version 1)
Quarter: 2025Q1

REPORT INFORMATION
  Report Type: Report from Study
  Country: IN (occurrence: IN)
  Receive Date: 20250314
  Receipt Date: 20250314
  Transmission Date: 20250408
  Serious: Yes (Death)
  Sender: ROCHE
  Company Number: IN-ROCHE-10000188087

PATIENT
  Age: 65 Year
  Sex: Male
  Weight: 83.7 kg

DRUGS (1)
  1. TECENTRIQ [Suspect]
     Active Substance: ATEZOLIZUMAB
     Indication: Hepatocellular carcinoma
     Route: 042
     Dates: start: 20241114

REACTIONS (4)
  - Hepatic function abnormal [Unknown]
  - Blood bilirubin increased [Unknown]
  - Blood albumin increased [Unknown]
  - Neoplasm malignant [Fatal]
